FAERS Safety Report 6110572-7 (Version None)
Quarter: 2009Q1

REPORT INFORMATION
  Report Type: 
  Country: None (occurrence: None)
  Receive Date: 20090310
  Receipt Date: 20090302
  Transmission Date: 20090719
  Serious: Yes (Other)
  Sender: FDA-Public Use
  Company Number: US-GENENTECH-278404

PATIENT

DRUGS (2)
  1. BEVACIZUMAB [Suspect]
     Indication: ENDOMETRIAL CANCER
     Dosage: 10 MG/KG, DAYS 1+15
     Route: 042
     Dates: start: 20090122, end: 20090206
  2. TEMSIROLIMUS [Suspect]
     Indication: ENDOMETRIAL CANCER
     Dosage: 25 MG, UNK
     Route: 042

REACTIONS (2)
  - ACTIVATED PARTIAL THROMBOPLASTIN TIME PROLONGED [None]
  - INTERNATIONAL NORMALISED RATIO INCREASED [None]
